FAERS Safety Report 8259879-8 (Version None)
Quarter: 2012Q2

REPORT INFORMATION
  Report Type: 
  Country: None (occurrence: None)
  Receive Date: 20120404
  Receipt Date: 20120118
  Transmission Date: 20120825
  Serious: Yes (Other)
  Sender: FDA-Public Use
  Company Number: JP-GLAXOSMITHKLINE-B0776964A

PATIENT
  Age: 76 Year
  Sex: Male

DRUGS (10)
  1. ASCOMARNA [Concomitant]
     Dosage: .5MG PER DAY
     Route: 048
  2. ZYPREXA [Concomitant]
     Dosage: 4MG PER DAY
     Route: 048
  3. NORTRIPTYLINE HCL [Concomitant]
     Dosage: 75MG PER DAY
     Route: 048
  4. SURMONTIL [Concomitant]
     Dosage: 8MG PER DAY
     Route: 048
  5. LAMICTAL [Suspect]
     Indication: BIPOLAR DISORDER
     Dosage: 25MG PER DAY
     Route: 048
     Dates: start: 20111102, end: 20111116
  6. ASPIRIN [Concomitant]
     Dosage: .8MG PER DAY
     Route: 065
  7. CLONAZEPAM [Concomitant]
     Dosage: 2MG PER DAY
     Route: 048
  8. AMOXAPINE [Concomitant]
     Dosage: 40MG PER DAY
     Route: 048
  9. PROMACTA [Concomitant]
     Dosage: .8MG PER DAY
     Route: 048
  10. KENTAN [Concomitant]
     Dosage: 180MG PER DAY
     Route: 048

REACTIONS (5)
  - ASTHENIA [None]
  - MUSCULAR WEAKNESS [None]
  - HYPOAESTHESIA [None]
  - BRAIN NEOPLASM [None]
  - PERFORMANCE STATUS DECREASED [None]
